FAERS Safety Report 19381314 (Version 2)
Quarter: 2021Q3

REPORT INFORMATION
  Report Type: Report from Study
  Country: IT (occurrence: IT)
  Receive Date: 20210607
  Receipt Date: 20210717
  Transmission Date: 20211014
  Serious: Yes (Other)
  Sender: FDA-Public Use
  Company Number: IT-ACCORD-227368

PATIENT
  Age: 48 Year
  Sex: Male
  Weight: 69 kg

DRUGS (4)
  1. ABRAXANE [Suspect]
     Active Substance: PACLITAXEL
     Indication: PANCREATIC CARCINOMA STAGE IV
     Dosage: 5 MG/ML POWDER FOR SUSPENSION FOR INFUSION
     Route: 042
     Dates: start: 20210126
  2. CAPECITABINE. [Concomitant]
     Active Substance: CAPECITABINE
     Indication: PANCREATIC CARCINOMA STAGE IV
     Dosage: STRENGTH: 500 MG
     Route: 048
     Dates: start: 20210225
  3. GEMCITABINE ACCORD [Suspect]
     Active Substance: GEMCITABINE HYDROCHLORIDE
     Indication: PANCREATIC CARCINOMA STAGE IV
     Dosage: 100 MG / ML
     Route: 042
     Dates: start: 20210126
  4. CISPLATIN ACCORD HEALTHCARE ITALY [Concomitant]
     Active Substance: CISPLATIN
     Indication: PANCREATIC CARCINOMA STAGE IV
     Dosage: 1 MG / ML CONCENTRATE FOR SOLUTION
     Route: 042
     Dates: start: 20200126

REACTIONS (2)
  - Neutropenia [Unknown]
  - Neutrophilia [Unknown]

NARRATIVE: CASE EVENT DATE: 20210401
